FAERS Safety Report 6371810-9 (Version None)
Quarter: 2009Q3

REPORT INFORMATION
  Report Type: 
  Country: None (occurrence: None)
  Receive Date: 20090923
  Receipt Date: 20090915
  Transmission Date: 20100115
  Serious: Yes (Other)
  Sender: FDA-Public Use
  Company Number: BR-ABBOTT-09P-020-0597215-00

PATIENT
  Sex: Female
  Weight: 54 kg

DRUGS (2)
  1. SYNTHROID [Suspect]
     Indication: HYPOTHYROIDISM
     Route: 048
     Dates: start: 20090701
  2. SYNTHROID [Suspect]

REACTIONS (2)
  - ABORTION INCOMPLETE [None]
  - ALOPECIA [None]
